FAERS Safety Report 4448715-3 (Version None)
Quarter: 2004Q3

REPORT INFORMATION
  Report Type: 
  Country: None (occurrence: None)
  Receive Date: 20040909
  Receipt Date: 20040820
  Transmission Date: 20050211
  Serious: Yes (Hospitalization)
  Sender: FDA-Public Use
  Company Number: 863#3#2004-00004

PATIENT
  Age: 85 Year
  Sex: Female

DRUGS (4)
  1. IDROLAX (MACROGOL) [Suspect]
     Indication: CONSTIPATION
     Dosage: 10 G
     Route: 048
     Dates: start: 20020422
  2. FLUINDIONE (FLUINDIONE) [Suspect]
     Indication: THROMBOSIS PROPHYLAXIS
     Dosage: UP TO 1.7 5 TABLET
     Route: 048
     Dates: start: 20040420
  3. ACETAMINOPHEN [Suspect]
  4. OMEPRAZOLE [Suspect]
     Dosage: 20 MG
     Route: 048

REACTIONS (2)
  - DRUG INEFFECTIVE [None]
  - DRUG INTERACTION INHIBITION [None]
